FAERS Safety Report 21022240 (Version 1)
Quarter: 2022Q2

REPORT INFORMATION
  Report Type: Spontaneous
  Country: US (occurrence: US)
  Receive Date: 20220629
  Receipt Date: 20220629
  Transmission Date: 20220721
  Serious: Yes (Hospitalization)
  Sender: FDA-Public Use
  Company Number: US-MYLANLABS-2022M1048750

PATIENT
  Age: 40 Year
  Sex: Male

DRUGS (18)
  1. TACROLIMUS [Suspect]
     Active Substance: TACROLIMUS
     Indication: Immunosuppressant drug therapy
     Dosage: 1 MILLIGRAM, BID
     Route: 065
  2. PREDNISONE [Suspect]
     Active Substance: PREDNISONE
     Indication: Immunosuppressant drug therapy
     Dosage: 10 MILLIGRAM, QD
     Route: 065
  3. VORICONAZOLE [Suspect]
     Active Substance: VORICONAZOLE
     Indication: Disseminated aspergillosis
     Dosage: 400 MILLIGRAM, BID; FOR TWO DOSES- 6 MG/KG
     Route: 065
  4. VORICONAZOLE [Suspect]
     Active Substance: VORICONAZOLE
     Dosage: 300 MILLIGRAM, BID; 4 MG/KG
     Route: 065
  5. VORICONAZOLE [Suspect]
     Active Substance: VORICONAZOLE
     Dosage: 550 MILLIGRAM, BID
     Route: 065
  6. VORICONAZOLE [Suspect]
     Active Substance: VORICONAZOLE
     Dosage: UNK; VORICONAZOLE RESUMED AFTER ONCE DISCONTINUATION
     Route: 065
  7. TERBINAFINE [Suspect]
     Active Substance: TERBINAFINE
     Indication: Disseminated aspergillosis
     Dosage: 500 MILLIGRAM, BID
     Route: 065
  8. RUXOLITINIB [Suspect]
     Active Substance: RUXOLITINIB
     Indication: Immunosuppressant drug therapy
     Dosage: 5 MILLIGRAM, BID
     Route: 065
  9. ISAVUCONAZOLE [Suspect]
     Active Substance: ISAVUCONAZOLE
     Indication: Disseminated aspergillosis
     Dosage: 372 MILLIGRAM, QD
     Route: 065
  10. ISAVUCONAZOLE [Suspect]
     Active Substance: ISAVUCONAZOLE
     Dosage: 372 MILLIGRAM, QD; AFTER PERSISTENTLY POSITIVE GALACTOMANNAN
     Route: 065
  11. ISAVUCONAZOLE [Suspect]
     Active Substance: ISAVUCONAZOLE
     Dosage: 372 MILLIGRAM, QD; AFTER ASPERGILLUS GALACTOMANNAN LEVEL REACHED MORE THAN 10
     Route: 065
  12. MICAFUNGIN [Suspect]
     Active Substance: MICAFUNGIN
     Indication: Disseminated aspergillosis
     Dosage: 100 MILLIGRAM, QD; NTRAVENOUS (NOT SPECIFIED)
     Route: 042
  13. MICAFUNGIN [Suspect]
     Active Substance: MICAFUNGIN
     Dosage: 150 MILLIGRAM, QD; NTRAVENOUS (NOT SPECIFIED)
     Route: 042
  14. AMPHOTERICIN B [Suspect]
     Active Substance: AMPHOTERICIN B
     Indication: Disseminated aspergillosis
     Dosage: 5 MILLIGRAM/KILOGRAM, QD; INTRAVENOUS (NOT SPECIFIED)
     Route: 042
  15. AMPHOTERICIN B [Suspect]
     Active Substance: AMPHOTERICIN B
     Dosage: 5 MILLIGRAM/KILOGRAM, 3XW; THREE TIMES WEEKLY (AFTER DISCHARGE)
     Route: 042
  16. FOSCARNET [Concomitant]
     Active Substance: FOSCARNET
     Indication: Cytomegalovirus infection reactivation
     Dosage: UNK
     Route: 065
  17. AMPICILLIN [Concomitant]
     Active Substance: AMPICILLIN
     Indication: Antibiotic therapy
     Dosage: UNK
     Route: 065
  18. CEFTRIAXONE [Concomitant]
     Active Substance: CEFTRIAXONE
     Indication: Antibiotic therapy
     Dosage: UNK
     Route: 065

REACTIONS (2)
  - Disseminated aspergillosis [Recovering/Resolving]
  - Drug ineffective [Unknown]
